FAERS Safety Report 6128979-0 (Version None)
Quarter: 2009Q1

REPORT INFORMATION
  Report Type: 
  Country: None (occurrence: None)
  Receive Date: 20090324
  Receipt Date: 20090320
  Transmission Date: 20090719
  Serious: Yes (Death)
  Sender: FDA-Public Use
  Company Number: PHHY2009GT10521

PATIENT
  Age: 85 Year
  Sex: Female

DRUGS (1)
  1. EXELON [Suspect]
     Dosage: 1.5 MG
     Route: 048

REACTIONS (1)
  - DEATH [None]
